FAERS Safety Report 15074419 (Version 1)
Quarter: 2018Q2

REPORT INFORMATION
  Report Type: Spontaneous
  Country: DE (occurrence: DE)
  Receive Date: 20180627
  Receipt Date: 20180627
  Transmission Date: 20180711
  Serious: Yes (Other)
  Sender: FDA-Public Use
  Company Number: PHHY2018DE029219

PATIENT
  Sex: Male

DRUGS (1)
  1. ILARIS [Suspect]
     Active Substance: CANAKINUMAB
     Indication: STILL^S DISEASE
     Dosage: 150 MG, UNK
     Route: 065

REACTIONS (6)
  - C-reactive protein increased [Unknown]
  - Serum ferritin increased [Unknown]
  - Inflammation [Unknown]
  - Histiocytosis haematophagic [Unknown]
  - Procalcitonin decreased [Unknown]
  - Bicytopenia [Unknown]
